FAERS Safety Report 6173650-2 (Version None)
Quarter: 2009Q2

REPORT INFORMATION
  Report Type: 
  Country: None (occurrence: None)
  Receive Date: 20090430
  Receipt Date: 20071219
  Transmission Date: 20091009
  Serious: Yes (Hospitalization)
  Sender: FDA-Public Use
  Company Number: BR-ROCHE-625884

PATIENT

DRUGS (2)
  1. PEG-INTERFERON ALFA 2A (RO 25-8310) [Suspect]
     Indication: HEPATITIS C
     Dosage: STRENGTH AND DOSAGE: 180 UG/ML. STRENGTH,FORM AND DOSAGE CAPTURED FROM THE PROTOCOL.
     Route: 058
  2. RIBAVIRIN [Suspect]
     Indication: HEPATITIS C
     Dosage: FREQUENCY: DAILY. ROUTE, FORM AND FREQUENCY CAPTURED FROM THE PROTOCOL
     Route: 048

REACTIONS (6)
  - ASCITES [None]
  - DIARRHOEA [None]
  - EPISTAXIS [None]
  - HAEMOPTYSIS [None]
  - HEADACHE [None]
  - PYREXIA [None]
